FAERS Safety Report 9803293 (Version 1)
Quarter: 2014Q1

REPORT INFORMATION
  Report Type: Spontaneous
  Country: US (occurrence: None)
  Receive Date: 20140102
  Receipt Date: 20140102
  Transmission Date: 20141002
  Serious: Yes (Hospitalization)
  Sender: FDA-Public Use
  Company Number: UTC-042530

PATIENT
  Age: 60 Year
  Sex: Female
  Weight: 77.3 kg

DRUGS (1)
  1. REMODULIN (1 MILLIGRAM/MILLILITERS, INJECTION FOR INFUSION) (TREPROSTINIL SODIUM) [Suspect]
     Indication: COR PULMONALE CHRONIC
     Dosage: 20.16 UG/KG (0.014 UG/KG, 1 IN 1 MIN), INTRAVENOUS DRIP
     Dates: start: 20131115

REACTIONS (2)
  - Adverse drug reaction [None]
  - Hospitalisation [None]
